APPROVED DRUG PRODUCT: SOLIFENACIN SUCCINATE
Active Ingredient: SOLIFENACIN SUCCINATE
Strength: 10MG
Dosage Form/Route: TABLET;ORAL
Application: A211423 | Product #002 | TE Code: AB
Applicant: RISING PHARMA HOLDINGS INC
Approved: Dec 11, 2019 | RLD: No | RS: No | Type: RX